FAERS Safety Report 5956086-6 (Version None)
Quarter: 2008Q4

REPORT INFORMATION
  Report Type: 
  Country: None (occurrence: None)
  Receive Date: 20081113
  Receipt Date: 20081104
  Transmission Date: 20090506
  Serious: No
  Sender: FDA-Public Use
  Company Number: 2008AP002111

PATIENT
  Age: 15 Year
  Sex: Female

DRUGS (4)
  1. DIVALPROEX SODIUM [Suspect]
     Indication: CONVULSION
     Dosage: 500 MG;BID;PO
     Route: 048
     Dates: start: 20080805
  2. CLONIDINE [Concomitant]
  3. METHYLPHENIDATE HCL [Concomitant]
  4. HYDROCHLORIDE [Concomitant]

REACTIONS (1)
  - FACIAL SPASM [None]
